FAERS Safety Report 4446533-3 (Version None)
Quarter: 2004Q3

REPORT INFORMATION
  Report Type: 
  Country: None (occurrence: None)
  Receive Date: 20040908
  Receipt Date: 20040819
  Transmission Date: 20050211
  Serious: Yes (Other)
  Sender: FDA-Public Use
  Company Number: 2004229790GB

PATIENT
  Age: 33 Year
  Sex: Female

DRUGS (1)
  1. DOSTINEX [Suspect]
     Indication: PITUITARY TUMOUR
     Dosage: ORAL
     Route: 048
     Dates: start: 20021001

REACTIONS (4)
  - VAGINAL CANCER STAGE 0 [None]
  - VAGINAL DYSPLASIA [None]
  - VULVAL ULCERATION [None]
  - VULVAR DYSPLASIA [None]
